FAERS Safety Report 24525401 (Version 1)
Quarter: 2024Q4

REPORT INFORMATION
  Report Type: Spontaneous
  Country: CZ (occurrence: CZ)
  Receive Date: 20241020
  Receipt Date: 20241020
  Transmission Date: 20250114
  Serious: No
  Sender: ABBVIE
  Company Number: CZ-RICHTER-2024-GR-009446

PATIENT
  Age: 33 Year
  Sex: Female

DRUGS (1)
  1. LEVONORGESTREL [Suspect]
     Active Substance: LEVONORGESTREL
     Indication: Contraception
     Dosage: 52 MG, SINGLE AT AN INITIAL RELEASE RATE OF 20 MICROGRAMS PER 24 HOURS
     Route: 015

REACTIONS (5)
  - Maternal exposure during pregnancy [Unknown]
  - Heavy menstrual bleeding [Unknown]
  - Device expulsion [Recovered/Resolved]
  - Pregnancy on contraceptive [Unknown]
  - Drug ineffective [Unknown]

NARRATIVE: CASE EVENT DATE: 20240101
